FAERS Safety Report 21364126 (Version 1)
Quarter: 2022Q3

REPORT INFORMATION
  Report Type: Spontaneous
  Country: US (occurrence: None)
  Receive Date: 20220922
  Receipt Date: 20220922
  Transmission Date: 20221027
  Serious: No
  Sender: FDA-Public Use
  Company Number: None

PATIENT
  Age: 93 Year
  Sex: Female

DRUGS (1)
  1. ZYLET [Suspect]
     Active Substance: LOTEPREDNOL ETABONATE\TOBRAMYCIN

REACTIONS (6)
  - Eye irritation [None]
  - Eye pain [None]
  - Ocular hyperaemia [None]
  - Condition aggravated [None]
  - Discomfort [None]
  - Hypersensitivity [None]

NARRATIVE: CASE EVENT DATE: 20220919
